FAERS Safety Report 5786331-1 (Version None)
Quarter: 2008Q2

REPORT INFORMATION
  Report Type: 
  Country: None (occurrence: None)
  Receive Date: 20080624
  Receipt Date: 20080616
  Transmission Date: 20081010
  Serious: Yes (Hospitalization)
  Sender: FDA-Public Use
  Company Number: JP-PFIZER INC-2008051553

PATIENT
  Age: 66 Year
  Sex: Male

DRUGS (2)
  1. LIPITOR [Suspect]
     Indication: HYPERCHOLESTEROLAEMIA
     Dosage: DAILY DOSE:5MG
     Route: 048
     Dates: start: 20080601, end: 20080611
  2. AMLODIPINE [Concomitant]
     Dosage: DAILY DOSE:2.5MG
     Route: 048
     Dates: start: 20080601, end: 20080611

REACTIONS (1)
  - SKIN DISORDER [None]
